FAERS Safety Report 9708832 (Version 1)
Quarter: 2013Q4

REPORT INFORMATION
  Report Type: Spontaneous
  Country: US (occurrence: US)
  Receive Date: 20131125
  Receipt Date: 20131125
  Transmission Date: 20140711
  Serious: Yes (Other)
  Sender: FDA-Public Use
  Company Number: US-TEVA-445561USA

PATIENT
  Age: 42 Year
  Sex: Female

DRUGS (2)
  1. PARAGARD 380A [Suspect]
     Indication: CONTRACEPTION
     Route: 015
     Dates: end: 20131115
  2. MOBIC [Concomitant]
     Indication: ARTHRALGIA

REACTIONS (4)
  - Medical device complication [Not Recovered/Not Resolved]
  - Ovarian cyst [Unknown]
  - Muscle tightness [Unknown]
  - Uterine tenderness [Unknown]
